FAERS Safety Report 5788105-4 (Version None)
Quarter: 2008Q2

REPORT INFORMATION
  Report Type: 
  Country: None (occurrence: None)
  Receive Date: 20080625
  Receipt Date: 20070618
  Transmission Date: 20081010
  Serious: Yes (Death)
  Sender: FDA-Public Use
  Company Number: BR-BOEHRINGER INGELHEIM GMBH, GERMANY-2008-BP-09801BR

PATIENT

DRUGS (5)
  1. SPIRIVA [Suspect]
     Indication: CHRONIC OBSTRUCTIVE PULMONARY DISEASE
  2. BRONCHODILATOR (NON-SPECIFIED SUBSTANCE) [Concomitant]
  3. CORTICOSTEROIDS (NON-SPECIFIED SUBSTANCE) [Concomitant]
  4. ACE INHIBITORS (NON-SPECIFIED SUBSTANCE) [Concomitant]
  5. BETA BLOCKING (NON-SPECIFIED SUBSTANCE) [Concomitant]

REACTIONS (4)
  - INFECTION [None]
  - MULTI-ORGAN FAILURE [None]
  - PNEUMONIA [None]
  - RESPIRATORY TRACT INFECTION [None]
